FAERS Safety Report 7698924-5 (Version None)
Quarter: 2011Q3

REPORT INFORMATION
  Report Type: 
  Country: None (occurrence: None)
  Receive Date: 20110819
  Receipt Date: 20110808
  Transmission Date: 20111222
  Serious: Yes (Other)
  Sender: FDA-Public Use
  Company Number: US-ELI_LILLY_AND_COMPANY-US201105006677

PATIENT
  Age: 76 Year
  Sex: Female

DRUGS (2)
  1. FORTEO [Suspect]
  2. FORTEO [Suspect]
     Indication: OSTEOPOROSIS
     Route: 065

REACTIONS (4)
  - INJECTION SITE PAIN [None]
  - VISUAL IMPAIRMENT [None]
  - DRY THROAT [None]
  - NEPHROLITHIASIS [None]
